FAERS Safety Report 9504101 (Version 1)
Quarter: 2013Q3

REPORT INFORMATION
  Report Type: Spontaneous
  Country: US (occurrence: US)
  Receive Date: 20130906
  Receipt Date: 20130906
  Transmission Date: 20140515
  Serious: Yes (Other)
  Sender: FDA-Public Use
  Company Number: US-ROCHE-1270525

PATIENT
  Sex: Female
  Weight: 94.89 kg

DRUGS (4)
  1. KLONOPIN [Suspect]
     Indication: NEURALGIA
     Route: 065
  2. KLONOPIN [Suspect]
     Indication: TRIGEMINAL NEURALGIA
     Route: 065
  3. LYRICA [Concomitant]
     Indication: NEURALGIA
     Route: 065
  4. LYRICA [Concomitant]
     Indication: TRIGEMINAL NEURALGIA

REACTIONS (2)
  - Laryngeal oedema [Unknown]
  - Pharyngeal haemorrhage [Unknown]
